FAERS Safety Report 14991239 (Version 1)
Quarter: 2018Q2

REPORT INFORMATION
  Report Type: Spontaneous
  Country: DE (occurrence: DE)
  Receive Date: 20180608
  Receipt Date: 20180608
  Transmission Date: 20180711
  Serious: Yes (Hospitalization)
  Sender: FDA-Public Use
  Company Number: DE-TEVA-2018-DE-903544

PATIENT
  Age: 80 Year
  Sex: Female

DRUGS (11)
  1. ACETYLSALICYLSAEURE [Concomitant]
     Active Substance: ASPIRIN
     Dosage: 100 MG, 0-1-0-0
  2. URAPIDIL [Concomitant]
     Active Substance: URAPIDIL
     Dosage: 30 MG, 1-1-0-0
  3. ACETYLCYSTEIN [Concomitant]
     Active Substance: ACETYLCYSTEINE
     Dosage: 600 MG, 1-0-0-0
  4. MOLSIDOMIN [Concomitant]
     Active Substance: MOLSIDOMINE
     Dosage: 8 MG, 0-0-1-0
  5. SIMVASTATIN. [Concomitant]
     Active Substance: SIMVASTATIN
     Dosage: 20 MG, 1-0-0-0
  6. FUROSEMID [Concomitant]
     Active Substance: FUROSEMIDE
     Dosage: 20 MG, 1-0-0-0
  7. PANTOPRAZOL [Concomitant]
     Active Substance: PANTOPRAZOLE SODIUM
     Dosage: 40 MG, 1-0-0-0
  8. NITRENDIPIN [Concomitant]
     Active Substance: NITRENDIPINE
     Dosage: 20 MG, 1-0-0-1
  9. AMOXICILLIN/CLAVULANSAURE [Concomitant]
     Dosage: 500|125 MG, 1-0-1-0
  10. METOPROLOL. [Suspect]
     Active Substance: METOPROLOL
     Dosage: 47.5 MG, 1-0-1-0
     Route: 065
  11. ALLOPURINOL. [Concomitant]
     Active Substance: ALLOPURINOL
     Dosage: 100 MG, 0-1-0-0

REACTIONS (4)
  - Peripheral coldness [Unknown]
  - Drug prescribing error [Unknown]
  - Pain [Unknown]
  - Peripheral ischaemia [Unknown]
